FAERS Safety Report 5364053-9 (Version None)
Quarter: 2007Q2

REPORT INFORMATION
  Report Type: 
  Country: None (occurrence: None)
  Receive Date: 20070620
  Receipt Date: 20070607
  Transmission Date: 20071010
  Serious: No
  Sender: FDA-Public Use
  Company Number: GB-ASTRAZENECA-2007GB01199

PATIENT
  Sex: Female

DRUGS (6)
  1. QUETIAPINE [Suspect]
     Indication: SCHIZOAFFECTIVE DISORDER
     Route: 048
  2. NALTREXONE [Concomitant]
  3. FLUOXETINE [Concomitant]
  4. VALPROATE SODIUM [Concomitant]
  5. CETIRIZINE HCL [Concomitant]
  6. OMACOR [Concomitant]

REACTIONS (1)
  - NEUTROPENIA [None]
